FAERS Safety Report 7178913-X (Version None)
Quarter: 2010Q4

REPORT INFORMATION
  Report Type: 
  Country: None (occurrence: None)
  Receive Date: 20101221
  Receipt Date: 20101213
  Transmission Date: 20110411
  Serious: Yes (Hospitalization, Other)
  Sender: FDA-Public Use
  Company Number: US-ASTELLAS-2010US005050

PATIENT

DRUGS (7)
  1. PROGRAF [Suspect]
     Indication: PANCREAS TRANSPLANT
     Dosage: 1.5 MG, BID
     Route: 048
     Dates: start: 20081011
  2. CELLCEPT [Concomitant]
     Indication: PANCREAS TRANSPLANT
     Dosage: 500 MG, BID
     Route: 048
     Dates: start: 20081011
  3. PANTOPRAZOLE [Concomitant]
     Indication: ANTACID THERAPY
     Dosage: 40 MG, UID/QD
     Route: 048
     Dates: start: 20081011
  4. SODIUM BICARBONATE [Concomitant]
     Indication: ANTACID THERAPY
     Dosage: 1300 MG, BID
     Route: 048
     Dates: start: 20081011
  5. SULFAMETHOXAZOLE [Concomitant]
     Indication: PROPHYLAXIS
     Dosage: 1 DF, UID/QD
     Route: 048
     Dates: start: 20081011
  6. MAGNESIUM [Concomitant]
     Indication: OSTEOPOROSIS PROPHYLAXIS
     Dosage: 500 MG, BID
     Route: 048
     Dates: start: 20081011
  7. CALCIUM W/VITAMIN D NOS [Concomitant]
     Indication: OSTEOPOROSIS PROPHYLAXIS
     Dosage: 500 MG, BID
     Route: 048
     Dates: start: 20081011

REACTIONS (2)
  - B-CELL LYMPHOMA [None]
  - LABORATORY TEST ABNORMAL [None]
